FAERS Safety Report 14958993 (Version 3)
Quarter: 2018Q3

REPORT INFORMATION
  Report Type: Spontaneous
  Country: PT (occurrence: PT)
  Receive Date: 20180531
  Receipt Date: 20180904
  Transmission Date: 20181010
  Serious: Yes (Other)
  Sender: FDA-Public Use
  Company Number: PT-BAYER-2018-090244

PATIENT
  Age: 83 Year
  Sex: Male
  Weight: 66 kg

DRUGS (5)
  1. GADOVIST [Suspect]
     Active Substance: GADOBUTROL
     Indication: NUCLEAR MAGNETIC RESONANCE IMAGING ABDOMINAL
     Dosage: 6.6 ML, ONCE, PERFUSION 2,5?3ML/S
     Route: 042
     Dates: start: 20180220, end: 20180220
  2. AMLODIPIN [Concomitant]
     Active Substance: AMLODIPINE BESYLATE
  3. TAMSULOSIN [Concomitant]
     Active Substance: TAMSULOSIN
  4. CARVEDILOL. [Concomitant]
     Active Substance: CARVEDILOL
  5. ACETYLSALICYLIC ACID [Concomitant]
     Active Substance: ASPIRIN

REACTIONS (6)
  - Oedema peripheral [Not Recovered/Not Resolved]
  - Urinary tract infection [None]
  - Balance disorder [Not Recovered/Not Resolved]
  - Prostatitis [None]
  - Dizziness [Not Recovered/Not Resolved]
  - Muscular weakness [Not Recovered/Not Resolved]

NARRATIVE: CASE EVENT DATE: 20180320
